FAERS Safety Report 25840155 (Version 1)
Quarter: 2025Q3

REPORT INFORMATION
  Report Type: Spontaneous
  Country: US (occurrence: US)
  Receive Date: 20250924
  Receipt Date: 20250924
  Transmission Date: 20251021
  Serious: Yes (Hospitalization, Other)
  Sender: SANOFI AVENTIS
  Company Number: US-SA-2025SA092430

PATIENT
  Age: 32 Year
  Sex: Female
  Weight: 142.8 kg

DRUGS (36)
  1. DUPIXENT [Suspect]
     Active Substance: DUPILUMAB
     Indication: Illness
     Dosage: 300 MG, QOW
     Route: 058
  2. HIZENTRA [Concomitant]
     Active Substance: HUMAN IMMUNOGLOBULIN G
  3. Lmx [Concomitant]
  4. DIPHENHYDRAMINE HYDROCHLORIDE [Concomitant]
     Active Substance: DIPHENHYDRAMINE HYDROCHLORIDE
  5. ACETAMINOPHEN [Concomitant]
     Active Substance: ACETAMINOPHEN
  6. PAMELOR [Concomitant]
     Active Substance: NORTRIPTYLINE HYDROCHLORIDE
  7. DILTIAZEM [Concomitant]
     Active Substance: DILTIAZEM
  8. LEVOTHYROXINE SODIUM [Concomitant]
     Active Substance: LEVOTHYROXINE SODIUM
  9. CYCLOBENZAPRINE HYDROCHLORIDE [Concomitant]
     Active Substance: CYCLOBENZAPRINE HYDROCHLORIDE
  10. ASCORBIC ACID\IRON [Concomitant]
     Active Substance: ASCORBIC ACID\IRON
  11. Non aspirin [Concomitant]
  12. CRANBERRY [Concomitant]
     Active Substance: CRANBERRY
  13. BREO ELLIPTA [Concomitant]
     Active Substance: FLUTICASONE FUROATE\VILANTEROL TRIFENATATE
  14. LEVALBUTEROL [Concomitant]
     Active Substance: LEVALBUTEROL
  15. EPINEPHRINE [Concomitant]
     Active Substance: EPINEPHRINE
  16. LIPITOR [Concomitant]
     Active Substance: ATORVASTATIN CALCIUM
  17. BIOTIN [Concomitant]
     Active Substance: BIOTIN
  18. VITAMINS [Concomitant]
     Active Substance: VITAMINS
     Dosage: QD
  19. ONDANSETRON HYDROCHLORIDE [Concomitant]
     Active Substance: ONDANSETRON HYDROCHLORIDE
  20. ZOLOFT [Concomitant]
     Active Substance: SERTRALINE HYDROCHLORIDE
  21. ELIQUIS [Concomitant]
     Active Substance: APIXABAN
  22. PATADAY [Concomitant]
     Active Substance: OLOPATADINE HYDROCHLORIDE
     Dosage: UNK, QD
  23. LATANOPROST [Concomitant]
     Active Substance: LATANOPROST
  24. MELATONIN [Concomitant]
     Active Substance: MELATONIN
  25. SPIRIVA [Concomitant]
     Active Substance: TIOTROPIUM BROMIDE MONOHYDRATE
  26. FUROSEMIDE [Concomitant]
     Active Substance: FUROSEMIDE
  27. ZYRTEC [Concomitant]
     Active Substance: CETIRIZINE HYDROCHLORIDE
  28. GABAPENTIN [Concomitant]
     Active Substance: GABAPENTIN
  29. SINGULAIR [Concomitant]
     Active Substance: MONTELUKAST SODIUM
  30. CLONAZEPAM [Concomitant]
     Active Substance: CLONAZEPAM
  31. PULMICORT TURBUHALER [Concomitant]
     Active Substance: BUDESONIDE
  32. FORTEO [Concomitant]
     Active Substance: TERIPARATIDE
  33. PERCOCET [Concomitant]
     Active Substance: ACETAMINOPHEN\OXYCODONE HYDROCHLORIDE
  34. AZELASTINE HYDROCHLORIDE [Concomitant]
     Active Substance: AZELASTINE HYDROCHLORIDE
  35. PREDNISONE [Concomitant]
     Active Substance: PREDNISONE
  36. CYCLOBENZAPRINE HYDROCHLORIDE [Concomitant]
     Active Substance: CYCLOBENZAPRINE HYDROCHLORIDE

REACTIONS (3)
  - Pneumonia [Unknown]
  - Pancreatitis [Unknown]
  - Hospitalisation [Unknown]

NARRATIVE: CASE EVENT DATE: 20250325
